FAERS Safety Report 7421404-9 (Version None)
Quarter: 2011Q2

REPORT INFORMATION
  Report Type: 
  Country: None (occurrence: None)
  Receive Date: 20110418
  Receipt Date: 20110412
  Transmission Date: 20111010
  Serious: Yes (Life-Threatening, Other)
  Sender: FDA-Public Use
  Company Number: US-ASTRAZENECA-2011SE12082

PATIENT
  Age: 71 Year
  Sex: Female
  Weight: 72.6 kg

DRUGS (5)
  1. SYMBICORT [Suspect]
     Indication: EMPHYSEMA
     Dosage: 160/4.5 MCG TWO PUFFS TWICE A DAY
     Route: 055
     Dates: start: 20101001
  2. CHOLESTEROL MEDICATION [Concomitant]
  3. SYMBICORT [Suspect]
     Dosage: 160/4.5 MCG ONE PUFF TWICE A DAY
     Route: 055
  4. THYROID MEDICATION [Concomitant]
  5. VITAMINS [Concomitant]

REACTIONS (5)
  - OXYGEN SATURATION DECREASED [None]
  - DIZZINESS [None]
  - DRUG DOSE OMISSION [None]
  - DYSPNOEA [None]
  - LOSS OF CONSCIOUSNESS [None]
